FAERS Safety Report 7990752-6 (Version None)
Quarter: 2011Q4

REPORT INFORMATION
  Report Type: 
  Country: None (occurrence: None)
  Receive Date: 20111219
  Receipt Date: 20111219
  Transmission Date: 20120403
  Serious: Yes (Hospitalization)
  Sender: FDA-Public Use
  Company Number: None

PATIENT
  Age: 24 Year
  Sex: Female
  Weight: 58.967 kg

DRUGS (1)
  1. SAFYRAL [Suspect]
     Indication: CONTRACEPTION
     Dates: start: 20110705, end: 20111211

REACTIONS (5)
  - PAIN IN EXTREMITY [None]
  - HYPOAESTHESIA [None]
  - CHROMATURIA [None]
  - FATIGUE [None]
  - URINE ODOUR ABNORMAL [None]
